APPROVED DRUG PRODUCT: MERETEK UBT KIT (W/ PRANACTIN)
Active Ingredient: UREA C-13
Strength: 125MG/VIAL
Dosage Form/Route: FOR SOLUTION;ORAL
Application: N020586 | Product #001
Applicant: OTSUKA AMERICA PHARMACEUTICALS INC
Approved: Sep 17, 1996 | RLD: No | RS: No | Type: DISCN